FAERS Safety Report 16557131 (Version 1)
Quarter: 2019Q3

REPORT INFORMATION
  Report Type: Spontaneous
  Country: CA (occurrence: CA)
  Receive Date: 20190711
  Receipt Date: 20190711
  Transmission Date: 20191004
  Serious: Yes (Other)
  Sender: FDA-Public Use
  Company Number: CA-AUROBINDO-AUR-APL-2019-038434

PATIENT

DRUGS (2)
  1. TERBINAFINE. [Suspect]
     Active Substance: TERBINAFINE
     Indication: ONYCHOMYCOSIS
     Dosage: 1.0 DOSAGE FORM, ONCE A DAY
     Route: 048
  2. ACT TERBINAFINE [Suspect]
     Active Substance: TERBINAFINE HYDROCHLORIDE
     Indication: ONYCHOMYCOSIS
     Dosage: 250 MILLIGRAM, ONCE A DAY
     Route: 065

REACTIONS (19)
  - Dysphagia [Recovered/Resolved]
  - Erythema [Recovered/Resolved]
  - Rash pruritic [Recovered/Resolved]
  - Shock [Recovered/Resolved]
  - Blister [Recovered/Resolved]
  - Dysuria [Recovered/Resolved]
  - Pruritus generalised [Recovered/Resolved]
  - Chest pain [Recovered/Resolved]
  - Delirium [Recovered/Resolved]
  - Atelectasis [Recovered/Resolved]
  - Fatigue [Recovered/Resolved]
  - Skin exfoliation [Recovered/Resolved]
  - Discomfort [Recovered/Resolved]
  - Dyspnoea [Recovered/Resolved]
  - Drug hypersensitivity [Recovered/Resolved]
  - Impaired driving ability [Recovered/Resolved]
  - Impaired work ability [Recovered/Resolved]
  - Depressed level of consciousness [Recovered/Resolved]
  - Rash generalised [Recovered/Resolved]
